FAERS Safety Report 4288489-2 (Version None)
Quarter: 2004Q1

REPORT INFORMATION
  Report Type: 
  Country: None (occurrence: None)
  Receive Date: 20040205
  Receipt Date: 20040119
  Transmission Date: 20041129
  Serious: Yes (Hospitalization, Other)
  Sender: FDA-Public Use
  Company Number: US_0401100044

PATIENT
  Age: 41 Year
  Sex: Male
  Weight: 98 kg

DRUGS (4)
  1. HUMULIN N [Suspect]
     Indication: DIABETES MELLITUS
     Dates: start: 19840101
  2. HUMALOG [Suspect]
     Indication: DIABETES MELLITUS
     Dates: start: 20020101
  3. NPH ILETIN II (PORK) [Suspect]
     Indication: DIABETES MELLITUS
  4. LANTUS [Concomitant]

REACTIONS (7)
  - BLOOD GLUCOSE DECREASED [None]
  - DIABETES MELLITUS INADEQUATE CONTROL [None]
  - DISORIENTATION [None]
  - HEART RATE INCREASED [None]
  - MEDICATION ERROR [None]
  - MYOCARDIAL INFARCTION [None]
  - TREMOR [None]
